FAERS Safety Report 18119929 (Version 1)
Quarter: 2020Q3

REPORT INFORMATION
  Report Type: Spontaneous
  Country: US (occurrence: US)
  Receive Date: 20200806
  Receipt Date: 20200806
  Transmission Date: 20201103
  Serious: Yes (Other)
  Sender: FDA-Public Use
  Company Number: US-AUROBINDO-AUR-APL-2020-037557

PATIENT
  Age: 68 Year
  Sex: Female

DRUGS (1)
  1. BIVALIRUDIN. [Suspect]
     Active Substance: BIVALIRUDIN
     Indication: PRODUCT USED FOR UNKNOWN INDICATION
     Dosage: UNK
     Route: 065

REACTIONS (5)
  - Hypotension [Recovered/Resolved]
  - Cardiac tamponade [Recovered/Resolved]
  - Bradycardia [Recovered/Resolved]
  - Haemorrhage [Recovered/Resolved]
  - Pericardial effusion [Recovered/Resolved]
